FAERS Safety Report 12396722 (Version 1)
Quarter: 2016Q2

REPORT INFORMATION
  Report Type: Spontaneous
  Country: US (occurrence: US)
  Receive Date: 20160524
  Receipt Date: 20160524
  Transmission Date: 20160815
  Serious: Yes (Hospitalization, Other)
  Sender: FDA-Public Use
  Company Number: US-ZYDUS-011147

PATIENT
  Age: 16 Year
  Sex: Female

DRUGS (1)
  1. BUPROPION/BUPROPION HYDROCHLORIDE [Suspect]
     Active Substance: BUPROPION HYDROCHLORIDE
     Indication: PRODUCT USED FOR UNKNOWN INDICATION
     Dosage: INGESTING 60 TABS
     Route: 048

REACTIONS (14)
  - Leukocytosis [Unknown]
  - Cardiac output decreased [Unknown]
  - Pulseless electrical activity [Recovered/Resolved]
  - Generalised tonic-clonic seizure [Recovered/Resolved]
  - Cardiomyopathy [Unknown]
  - Pupil fixed [Unknown]
  - Cardiogenic shock [Unknown]
  - Bradycardia [Recovered/Resolved]
  - Status epilepticus [Recovered/Resolved]
  - Cardiac arrest [Recovered/Resolved]
  - Overdose [Unknown]
  - Mydriasis [Unknown]
  - Electrocardiogram QRS complex prolonged [Unknown]
  - Tachycardia [Unknown]
